FAERS Safety Report 18057808 (Version 1)
Quarter: 2020Q3

REPORT INFORMATION
  Report Type: Spontaneous
  Country: US (occurrence: US)
  Receive Date: 20200723
  Receipt Date: 20200723
  Transmission Date: 20201103
  Serious: Yes (Death, Other)
  Sender: FDA-Public Use
  Company Number: US-TEVA-2020-US-1804243

PATIENT
  Sex: Male

DRUGS (4)
  1. HEROIN [Suspect]
     Active Substance: DIAMORPHINE
     Route: 065
  2. SUBOXONE [Suspect]
     Active Substance: BUPRENORPHINE HYDROCHLORIDE\NALOXONE HYDROCHLORIDE
     Route: 065
  3. COCAINE [Suspect]
     Active Substance: COCAINE
     Route: 065
  4. FENTANYL. [Suspect]
     Active Substance: FENTANYL
     Indication: PRODUCT USED FOR UNKNOWN INDICATION
     Route: 065

REACTIONS (4)
  - Hallucination, auditory [Unknown]
  - Overdose [Fatal]
  - Schizophrenia [Unknown]
  - Drug dependence [Unknown]
